FAERS Safety Report 10227145 (Version 1)
Quarter: 2014Q2

REPORT INFORMATION
  Report Type: Spontaneous
  Country: US (occurrence: None)
  Receive Date: 20140609
  Receipt Date: 20140609
  Transmission Date: 20141212
  Serious: Yes (Hospitalization)
  Sender: FDA-Public Use
  Company Number: None

PATIENT
  Age: 61 Year
  Sex: Male

DRUGS (10)
  1. GLYBURIDE [Concomitant]
  2. HYDROMOPHONE [Concomitant]
  3. HYDROXYZINE [Concomitant]
  4. OMEPRAZOLE [Concomitant]
  5. SITAGLIPIN [Concomitant]
  6. SOFOSBUVIR [Concomitant]
  7. TACROLIMUS [Concomitant]
  8. TERIPARATIDE [Concomitant]
  9. URSODIOL [Concomitant]
  10. RIBAVIRIN [Concomitant]

REACTIONS (4)
  - Pyrexia [None]
  - Abdominal pain [None]
  - Lethargy [None]
  - Hypophagia [None]
